FAERS Safety Report 13485895 (Version 1)
Quarter: 2017Q2

REPORT INFORMATION
  Report Type: Spontaneous
  Country: US (occurrence: US)
  Receive Date: 20170426
  Receipt Date: 20170426
  Transmission Date: 20170830
  Serious: No
  Sender: FDA-Public Use
  Company Number: US-ASTRAZENECA-2017SE40067

PATIENT
  Sex: Female
  Weight: 83.1 kg

DRUGS (6)
  1. VITAMIN K [Concomitant]
     Active Substance: PHYTONADIONE
  2. TETANUS [Suspect]
     Active Substance: TETANUS ANTITOXIN
     Dosage: 0.5ML ONCE/SINGLE ADMINISTRATION
     Route: 030
     Dates: start: 20170320
  3. PREVNAR 13 [Suspect]
     Active Substance: PNEUMOCOCCAL 13-VALENT CONJUGATE VACCINE
     Dosage: 0.5ML ONCE/SINGLE ADMINISTRATION
     Route: 030
     Dates: start: 20170320
  4. ANASTRAZOLE [Suspect]
     Active Substance: ANASTROZOLE
     Indication: BREAST CANCER
     Route: 048
     Dates: start: 20161221
  5. VITAMIN D [Concomitant]
     Active Substance: CHOLECALCIFEROL
  6. CALCIUM CARBONATE. [Concomitant]
     Active Substance: CALCIUM CARBONATE

REACTIONS (9)
  - Peripheral swelling [Not Recovered/Not Resolved]
  - Bone pain [Not Recovered/Not Resolved]
  - Chills [Not Recovered/Not Resolved]
  - Pyrexia [Unknown]
  - Pain [Unknown]
  - Fatigue [Unknown]
  - Pruritus [Unknown]
  - Headache [Unknown]
  - Arthralgia [Not Recovered/Not Resolved]
